FAERS Safety Report 19421867 (Version 1)
Quarter: 2021Q2

REPORT INFORMATION
  Report Type: Spontaneous
  Country: NL (occurrence: NL)
  Receive Date: 20210615
  Receipt Date: 20210615
  Transmission Date: 20210717
  Serious: Yes (Other)
  Sender: FDA-Public Use
  Company Number: NL-SUN PHARMACEUTICAL INDUSTRIES LTD-2021RR-300819

PATIENT
  Age: 30 Year
  Sex: Female
  Weight: 64 kg

DRUGS (1)
  1. LETROZOLE. [Suspect]
     Active Substance: LETROZOLE
     Indication: OVULATION INDUCTION
     Dosage: 7.5 MILLIGRAM, DAILY; 1 X PER DAY 3 PIECES FOR 5 DAYS PER CYCLE
     Route: 065
     Dates: start: 202012

REACTIONS (1)
  - Leukopenia [Not Recovered/Not Resolved]

NARRATIVE: CASE EVENT DATE: 20210519
